FAERS Safety Report 8289424-2 (Version None)
Quarter: 2012Q1

REPORT INFORMATION
  Report Type: 
  Country: None (occurrence: None)
  Receive Date: 20120322
  Receipt Date: 20120220
  Transmission Date: 20120608
  Serious: Yes (Hospitalization)
  Sender: FDA-Public Use
  Company Number: UTC-015857

PATIENT
  Age: 73 Year
  Sex: Male
  Weight: 91.36 kg

DRUGS (3)
  1. TYVASO [Suspect]
     Indication: COR PULMONALE CHRONIC
     Dosage: 18-54 MCG, INHALATION
     Route: 055
     Dates: start: 20100330
  2. COUMADIN [Concomitant]
  3. TRACLEER [Concomitant]

REACTIONS (1)
  - COMPRESSION FRACTURE [None]
